FAERS Safety Report 9171426 (Version 1)
Quarter: 2013Q1

REPORT INFORMATION
  Report Type: Spontaneous
  Country: US (occurrence: None)
  Receive Date: 20130318
  Receipt Date: 20130318
  Transmission Date: 20140127
  Serious: No
  Sender: FDA-Public Use
  Company Number: None

PATIENT
  Age: 72 Year
  Sex: Male

DRUGS (10)
  1. STIVARGA, 40 MG, BAYER HEALTHCARE [Suspect]
     Indication: COLON CANCER
     Route: 048
  2. PROTONIX [Concomitant]
  3. CELEBREX [Concomitant]
  4. AZOPT [Concomitant]
  5. FOLIC ACID [Concomitant]
  6. VALTREX [Concomitant]
  7. GABAPENTIN [Concomitant]
  8. SERTRALINE [Concomitant]
  9. LATANOPROST SOL [Concomitant]
  10. FISH OIL [Concomitant]

REACTIONS (2)
  - Pain in extremity [None]
  - Pain in extremity [None]
